FAERS Safety Report 20307462 (Version 4)
Quarter: 2023Q1

REPORT INFORMATION
  Report Type: Report from Study
  Country: US (occurrence: US)
  Receive Date: 20220107
  Receipt Date: 20230314
  Transmission Date: 20230418
  Serious: Yes (Hospitalization)
  Sender: FDA-Public Use
  Company Number: US-NOVARTISPH-NVSC2022US002008

PATIENT
  Sex: Male

DRUGS (2)
  1. ENTRESTO [Suspect]
     Active Substance: SACUBITRIL\VALSARTAN
     Indication: Product used for unknown indication
     Dosage: UNK
     Route: 065
  2. ENTRESTO [Suspect]
     Active Substance: SACUBITRIL\VALSARTAN
     Dosage: 1 DOSAGE FORM, BID (97103 MG)
     Route: 048

REACTIONS (9)
  - Paraesthesia [Unknown]
  - Hyperhidrosis [Unknown]
  - Hypoacusis [Unknown]
  - Back pain [Unknown]
  - Decreased activity [Unknown]
  - Tremor [Unknown]
  - Amnesia [Unknown]
  - Fall [Unknown]
  - Asthenia [Unknown]
